FAERS Safety Report 7467677-8 (Version None)
Quarter: 2011Q2

REPORT INFORMATION
  Report Type: 
  Country: None (occurrence: None)
  Receive Date: 20110509
  Receipt Date: 20110429
  Transmission Date: 20111010
  Serious: Yes (Hospitalization)
  Sender: FDA-Public Use
  Company Number: PHHY2011NL36965

PATIENT
  Sex: Female

DRUGS (8)
  1. ASCAL [Concomitant]
  2. ATORVASTATIN [Concomitant]
  3. INHIBIN [Concomitant]
  4. GLIMEPIRIDE [Concomitant]
  5. XELODA [Concomitant]
  6. METOPROLOL TARTRATE [Concomitant]
  7. OMEPRAZOLE [Concomitant]
  8. ZOMETA [Suspect]
     Indication: METASTASES TO BONE
     Dosage: 4 MG/5 ML ONCE PER 28 DAYS
     Dates: start: 20110330

REACTIONS (2)
  - CHEST DISCOMFORT [None]
  - HAEMOGLOBIN DECREASED [None]
